FAERS Safety Report 25793173 (Version 2)
Quarter: 2025Q4

REPORT INFORMATION
  Report Type: Report from Study
  Country: BR (occurrence: BR)
  Receive Date: 20250911
  Receipt Date: 20251009
  Transmission Date: 20260117
  Serious: Yes (Hospitalization, Other)
  Sender: UCB
  Company Number: BR-UCBSA-2025032139

PATIENT
  Sex: Male
  Weight: 80 kg

DRUGS (1)
  1. BIMEKIZUMAB [Suspect]
     Active Substance: BIMEKIZUMAB
     Indication: Psoriasis
     Dosage: UNK, EV 8 WEEKS (TWO PENS)
     Route: 058
     Dates: start: 20240905

REACTIONS (6)
  - Road traffic accident [Recovered/Resolved]
  - Psoriatic arthropathy [Not Recovered/Not Resolved]
  - Influenza [Recovered/Resolved]
  - Incorrect dose administered by device [Unknown]
  - Needle issue [Unknown]
  - Product dose omission issue [Unknown]

NARRATIVE: CASE EVENT DATE: 20250101
